FAERS Safety Report 19805216 (Version 2)
Quarter: 2021Q3

REPORT INFORMATION
  Report Type: Report from Study
  Country: US (occurrence: US)
  Receive Date: 20210908
  Receipt Date: 20210924
  Transmission Date: 20211014
  Serious: Yes (Other)
  Sender: FDA-Public Use
  Company Number: US-UPSHER-SMITH LABORATORIES, LLC-2021USL00615

PATIENT
  Age: 88 Year
  Sex: Male

DRUGS (5)
  1. AMIODARONE HYDROCHLORIDE. [Suspect]
     Active Substance: AMIODARONE HYDROCHLORIDE
     Dosage: 0.5 TABLETS, EVERY 48 HOURS (DECREASED DOSE)
     Route: 048
  2. AMIODARONE HYDROCHLORIDE. [Suspect]
     Active Substance: AMIODARONE HYDROCHLORIDE
     Dosage: UNK
     Route: 048
  3. ENTRESTO [Suspect]
     Active Substance: SACUBITRIL\VALSARTAN
     Dosage: 24/26 MG, 2X/DAY
     Route: 048
  4. AMIODARONE HYDROCHLORIDE (AUROBINDO) [Suspect]
     Active Substance: AMIODARONE HYDROCHLORIDE
     Dosage: UNK
  5. AMIODARONE HYDROCHLORIDE (AUROBINDO) [Suspect]
     Active Substance: AMIODARONE HYDROCHLORIDE
     Dosage: 0.5 TABLETS, EVERY 48 HOURS

REACTIONS (2)
  - Squamous cell carcinoma [Not Recovered/Not Resolved]
  - Blood glucose increased [Unknown]

NARRATIVE: CASE EVENT DATE: 202108
